FAERS Safety Report 7068115-X (Version None)
Quarter: 2010Q4

REPORT INFORMATION
  Report Type: 
  Country: None (occurrence: None)
  Receive Date: 20101028
  Receipt Date: 20101018
  Transmission Date: 20110411
  Serious: Yes (Hospitalization, Other)
  Sender: FDA-Public Use
  Company Number: PHHY2010BR70775

PATIENT
  Sex: Male

DRUGS (11)
  1. RASILEZ [Suspect]
     Indication: HYPERTENSION
  2. TEGRETON CR [Concomitant]
     Indication: CONVULSION
     Dosage: 400MG, 1 TABLET DAILY
     Route: 048
  3. GLICLAZIDE [Concomitant]
     Indication: DIABETES MELLITUS
     Dosage: UNK
     Route: 048
  4. ACARBOSE [Concomitant]
     Indication: DIABETES MELLITUS
     Dosage: UNK
     Route: 048
  5. GLUCOVANCE [Concomitant]
     Indication: DIABETES MELLITUS
     Dosage: UNK
     Route: 048
  6. FUROSEMIDE [Concomitant]
     Dosage: UNK
     Route: 048
  7. CIPROFIBRATE [Concomitant]
     Indication: BLOOD CHOLESTEROL
     Dosage: UNK
     Route: 048
  8. PURAN T4 [Concomitant]
     Indication: HYPOTHYROIDISM
     Dosage: UNK
  9. OMEPRAZOLE [Concomitant]
     Indication: ABDOMINAL DISCOMFORT
     Dosage: UNK
  10. MYCOPHENOLATE MOFETIL [Concomitant]
     Indication: IMMUNOSUPPRESSION
     Dosage: 850 MG, TID
  11. TACROLIMUS [Concomitant]
     Indication: IMMUNOSUPPRESSION
     Dosage: 4MG DAILY
     Route: 048

REACTIONS (3)
  - CARDIAC OPERATION [None]
  - LUNG INFECTION [None]
  - VASCULAR GRAFT [None]
